FAERS Safety Report 8450249-6 (Version None)
Quarter: 2012Q2

REPORT INFORMATION
  Report Type: 
  Country: None (occurrence: None)
  Receive Date: 20120613
  Receipt Date: 20120604
  Transmission Date: 20120825
  Serious: Yes (Other)
  Sender: FDA-Public Use
  Company Number: AUR-APL-2012-01986

PATIENT
  Age: 48 Year
  Sex: Male
  Weight: 75 kg

DRUGS (4)
  1. ZOLOFT [Suspect]
     Indication: ANXIETY
     Dosage: 50 MG (50 MG, 1 IN 1 D), ORAL, 100 MG (50 MG, IN THE MORNING AND IN THE AFTERNOON), ORAL
     Route: 048
     Dates: start: 20010914
  2. ALPRAZOLAM [Concomitant]
  3. PAROXETINE HCL [Suspect]
     Indication: PRODUCT USED FOR UNKNOWN INDICATION
  4. LITHIUM CARBONATE [Concomitant]

REACTIONS (4)
  - DEPRESSION [None]
  - ANXIETY [None]
  - SMALL INTESTINE OPERATION [None]
  - DRUG EFFECT DECREASED [None]
